FAERS Safety Report 4749583-2 (Version None)
Quarter: 2005Q3

REPORT INFORMATION
  Report Type: 
  Country: None (occurrence: None)
  Receive Date: 20050822
  Receipt Date: 20050811
  Transmission Date: 20060218
  Serious: Yes (Other)
  Sender: FDA-Public Use
  Company Number: GB-GLAXOSMITHKLINE-B0390649A

PATIENT
  Sex: Male

DRUGS (1)
  1. SEROXAT [Suspect]

REACTIONS (2)
  - MURDER [None]
  - PSYCHIATRIC SYMPTOM [None]
